FAERS Safety Report 8388468-X (Version None)
Quarter: 2012Q2

REPORT INFORMATION
  Report Type: 
  Country: None (occurrence: None)
  Receive Date: 20120525
  Receipt Date: 20120521
  Transmission Date: 20120825
  Serious: Yes (Other)
  Sender: FDA-Public Use
  Company Number: JP-ASTRAZENECA-2012SE32311

PATIENT
  Age: 8 Month
  Sex: Female
  Weight: 9 kg

DRUGS (1)
  1. XYLOCAINE [Suspect]
     Dosage: 41 MG/KG
     Route: 058

REACTIONS (4)
  - OVERDOSE [None]
  - TOXICITY TO VARIOUS AGENTS [None]
  - CONVULSION [None]
  - ENCEPHALOPATHY [None]
